FAERS Safety Report 12607513 (Version 1)
Quarter: 2016Q3

REPORT INFORMATION
  Report Type: Report from Study
  Country: US (occurrence: US)
  Receive Date: 20160729
  Receipt Date: 20160729
  Transmission Date: 20161109
  Serious: Yes (Hospitalization, Other)
  Sender: FDA-Public Use
  Company Number: US-GILEAD-2016-0225454

PATIENT
  Age: 51 Year
  Sex: Male

DRUGS (5)
  1. ALPRAZOLAM. [Concomitant]
     Active Substance: ALPRAZOLAM
  2. SUVOREXANT. [Concomitant]
     Active Substance: SUVOREXANT
  3. LEDIPASVIR/SOFOSBUVIR [Suspect]
     Active Substance: LEDIPASVIR\SOFOSBUVIR
     Indication: CHRONIC HEPATITIS C
     Dosage: 1 DF, UNK
     Route: 048
     Dates: start: 201606
  4. EPINEPHRINE. [Concomitant]
     Active Substance: EPINEPHRINE
  5. METOPROLOL. [Concomitant]
     Active Substance: METOPROLOL

REACTIONS (13)
  - Large intestine polyp [Recovered/Resolved]
  - Polyp [Recovered/Resolved]
  - Rectal polyp [Recovered/Resolved]
  - Vertigo [Unknown]
  - Depression [Unknown]
  - Meningioma [Unknown]
  - Haemochromatosis [Unknown]
  - Migraine [Unknown]
  - Fatigue [Unknown]
  - Hypertension [Unknown]
  - Haemorrhoids [Unknown]
  - Erectile dysfunction [Unknown]
  - Mitral valve prolapse [Unknown]
